FAERS Safety Report 15257802 (Version 1)
Quarter: 2018Q3

REPORT INFORMATION
  Report Type: Spontaneous
  Country: US (occurrence: US)
  Receive Date: 20180718
  Receipt Date: 20180718
  Transmission Date: 20181010
  Serious: Yes (Hospitalization)
  Sender: FDA-Public Use
  Company Number: None

PATIENT
  Age: 38 Year
  Sex: Female
  Weight: 84 kg

DRUGS (2)
  1. RISPERIDONE. [Suspect]
     Active Substance: RISPERIDONE
     Indication: SCHIZOAFFECTIVE DISORDER
     Route: 048
     Dates: start: 20180405, end: 20180615
  2. CLOZAPINE (MYLAN) [Suspect]
     Active Substance: CLOZAPINE
     Indication: SCHIZOAFFECTIVE DISORDER
     Route: 048
     Dates: start: 20180531, end: 20180615

REACTIONS (11)
  - Malaise [None]
  - Pyrexia [None]
  - Pneumonia [None]
  - Neck pain [None]
  - Pain in extremity [None]
  - Hypotension [None]
  - Headache [None]
  - Sedation [None]
  - Neuroleptic malignant syndrome [None]
  - Nausea [None]
  - Tachycardia [None]

NARRATIVE: CASE EVENT DATE: 20180613
